FAERS Safety Report 10432322 (Version 3)
Quarter: 2014Q3

REPORT INFORMATION
  Report Type: Spontaneous
  Country: US (occurrence: US)
  Receive Date: 20140905
  Receipt Date: 20140917
  Transmission Date: 20150326
  Serious: Yes (Hospitalization, Other)
  Sender: FDA-Public Use
  Company Number: US-UNITED THERAPEUTICS-UNT-2014-004111

PATIENT
  Age: 78 Year
  Sex: Male
  Weight: 84.35 kg

DRUGS (4)
  1. REVATIO [Concomitant]
     Active Substance: SILDENAFIL CITRATE
     Indication: PRODUCT USED FOR UNKNOWN INDICATION
  2. ASPIRIN. [Concomitant]
     Active Substance: ASPIRIN
     Indication: PRODUCT USED FOR UNKNOWN INDICATION
  3. REMODULIN [Suspect]
     Active Substance: TREPROSTINIL
     Indication: PULMONARY ARTERIAL HYPERTENSION
     Dosage: 0.016 ?G/KG/MIN, CONTINUING
     Route: 058
     Dates: start: 20130314
  4. REMODULIN [Suspect]
     Active Substance: TREPROSTINIL
     Dosage: 0.002 ?G/KG/MIN, CONTINUING
     Route: 058
     Dates: start: 20140620, end: 201408

REACTIONS (7)
  - Dyskinesia [Recovering/Resolving]
  - Drug intolerance [Unknown]
  - Right ventricular failure [Unknown]
  - Dizziness [Unknown]
  - Feeling jittery [Recovering/Resolving]
  - Therapy cessation [Unknown]
  - Diarrhoea [Recovering/Resolving]

NARRATIVE: CASE EVENT DATE: 2014
